FAERS Safety Report 7388381-0 (Version None)
Quarter: 2011Q2

REPORT INFORMATION
  Report Type: 
  Country: None (occurrence: None)
  Receive Date: 20110401
  Receipt Date: 20110323
  Transmission Date: 20111010
  Serious: Yes (Other)
  Sender: FDA-Public Use
  Company Number: BR-US-EMD SERONO, INC.-7049821

PATIENT
  Age: 31 Year
  Sex: Female

DRUGS (2)
  1. CHORAGON [Concomitant]
  2. SEROPHENE [Suspect]
     Indication: ANOVULATORY CYCLE
     Dates: start: 20100701

REACTIONS (1)
  - ABORTION SPONTANEOUS [None]
